FAERS Safety Report 4420798-6 (Version None)
Quarter: 2004Q3

REPORT INFORMATION
  Report Type: 
  Country: None (occurrence: None)
  Receive Date: 20040809
  Receipt Date: 20040602
  Transmission Date: 20050211
  Serious: No
  Sender: FDA-Public Use
  Company Number: US-GLAXOSMITHKLINE-A0513043A

PATIENT
  Age: 79 Year
  Sex: Female

DRUGS (2)
  1. PAXIL [Suspect]
     Dosage: 20MG PER DAY
     Route: 048
     Dates: start: 20020501, end: 20021101
  2. ZESTRIL [Concomitant]

REACTIONS (4)
  - DIZZINESS [None]
  - DRUG WITHDRAWAL SYNDROME [None]
  - MEMORY IMPAIRMENT [None]
  - NAUSEA [None]
